FAERS Safety Report 18730097 (Version 1)
Quarter: 2021Q1

REPORT INFORMATION
  Report Type: Spontaneous
  Country: CN (occurrence: CN)
  Receive Date: 20210112
  Receipt Date: 20210112
  Transmission Date: 20210419
  Serious: Yes (Other)
  Sender: FDA-Public Use
  Company Number: CN-ROCHE-2746462

PATIENT
  Age: 45 Year
  Sex: Female

DRUGS (24)
  1. FULVESTRANT. [Concomitant]
     Active Substance: FULVESTRANT
     Indication: INVASIVE DUCTAL BREAST CARCINOMA
     Dates: start: 201901
  2. HERCEPTIN [Suspect]
     Active Substance: TRASTUZUMAB
     Route: 065
     Dates: start: 201901
  3. XELODA [Suspect]
     Active Substance: CAPECITABINE
     Indication: INVASIVE DUCTAL BREAST CARCINOMA
     Route: 048
     Dates: start: 201808, end: 201810
  4. PERJETA [Suspect]
     Active Substance: PERTUZUMAB
     Indication: INVASIVE DUCTAL BREAST CARCINOMA
     Route: 065
     Dates: start: 20150427
  5. GOSERELIN [Concomitant]
     Active Substance: GOSERELIN
     Dates: start: 201901
  6. HERCEPTIN [Suspect]
     Active Substance: TRASTUZUMAB
     Route: 065
     Dates: start: 201808, end: 201810
  7. PERJETA [Suspect]
     Active Substance: PERTUZUMAB
     Route: 065
     Dates: start: 201509
  8. ANASTROZOLE. [Concomitant]
     Active Substance: ANASTROZOLE
     Dates: start: 201706
  9. PYROTINIB [Concomitant]
     Active Substance: PYROTINIB
     Indication: INVASIVE DUCTAL BREAST CARCINOMA
     Dates: start: 201810
  10. GOSERELIN [Concomitant]
     Active Substance: GOSERELIN
     Dosage: THE DETAIL WAS NOT PROVIDED
  11. HERCEPTIN [Suspect]
     Active Substance: TRASTUZUMAB
     Indication: INVASIVE DUCTAL BREAST CARCINOMA
     Dosage: EC?TH
     Route: 065
  12. HERCEPTIN [Suspect]
     Active Substance: TRASTUZUMAB
     Route: 065
     Dates: start: 201706
  13. HERCEPTIN [Suspect]
     Active Substance: TRASTUZUMAB
     Route: 065
     Dates: start: 20190517, end: 20190830
  14. XELODA [Suspect]
     Active Substance: CAPECITABINE
     Route: 048
     Dates: start: 201810
  15. EPIRUBICIN [Concomitant]
     Active Substance: EPIRUBICIN
     Indication: INVASIVE DUCTAL BREAST CARCINOMA
     Dosage: EC?TH
  16. PACLITAXEL ALBUMIN [Concomitant]
     Active Substance: PACLITAXEL
     Indication: INVASIVE DUCTAL BREAST CARCINOMA
     Dates: start: 20190517, end: 20190830
  17. PERJETA [Suspect]
     Active Substance: PERTUZUMAB
     Dosage: 840.0 MG (DOUBLED FOR THE FIRST TIME), AND THEN 420 MG EACH TIME
     Route: 065
     Dates: start: 20190517, end: 20190830
  18. DOCETAXEL. [Concomitant]
     Active Substance: DOCETAXEL
     Indication: INVASIVE DUCTAL BREAST CARCINOMA
     Dosage: EC?TH
  19. PACLITAXEL. [Concomitant]
     Active Substance: PACLITAXEL
     Indication: INVASIVE DUCTAL BREAST CARCINOMA
     Dates: start: 20150427
  20. HERCEPTIN [Suspect]
     Active Substance: TRASTUZUMAB
     Dosage: THE DETAIL WAS NOT PROVIDED
     Route: 065
     Dates: start: 20150427
  21. HERCEPTIN [Suspect]
     Active Substance: TRASTUZUMAB
     Route: 065
     Dates: start: 201509
  22. CYCLOPHOSPHAMIDE. [Concomitant]
     Active Substance: CYCLOPHOSPHAMIDE
     Indication: INVASIVE DUCTAL BREAST CARCINOMA
     Dosage: EC?TH
  23. TOREMIFENE [Concomitant]
     Active Substance: TOREMIFENE
  24. GOSERELIN [Concomitant]
     Active Substance: GOSERELIN
     Dates: start: 201509

REACTIONS (7)
  - Pyrexia [Recovering/Resolving]
  - Asthenia [Recovering/Resolving]
  - Weight decreased [Unknown]
  - Hypoaesthesia [Recovering/Resolving]
  - Myelosuppression [Recovering/Resolving]
  - Paraesthesia [Recovering/Resolving]
  - White blood cell count decreased [Recovering/Resolving]

NARRATIVE: CASE EVENT DATE: 2019
